FAERS Safety Report 8202244-X (Version None)
Quarter: 2012Q1

REPORT INFORMATION
  Report Type: 
  Country: None (occurrence: None)
  Receive Date: 20120308
  Receipt Date: 20111007
  Transmission Date: 20120608
  Serious: Yes (Death)
  Sender: FDA-Public Use
  Company Number: FK201102201

PATIENT
  Age: 52 Year
  Sex: Female

DRUGS (4)
  1. QUETIAPINE FUMARATE [Concomitant]
  2. HALOPERIDOL [Suspect]
     Indication: AGGRESSION
     Dosage: INTRAVENOUS (NOT OTHERWISE SPECIFIED)
     Route: 042
  3. SEDATIVE HYPNOTICS [Concomitant]
  4. MIRTAZAPINE [Concomitant]

REACTIONS (9)
  - MASTOIDITIS [None]
  - INCORRECT DOSE ADMINISTERED [None]
  - NEUROLEPTIC MALIGNANT SYNDROME [None]
  - OTITIS MEDIA [None]
  - RESPIRATORY FAILURE [None]
  - MENTAL STATUS CHANGES [None]
  - AGGRESSION [None]
  - SELF-MEDICATION [None]
  - INSOMNIA [None]
